FAERS Safety Report 21224070 (Version 1)
Quarter: 2022Q3

REPORT INFORMATION
  Report Type: Spontaneous
  Country: US (occurrence: US)
  Receive Date: 20220817
  Receipt Date: 20220817
  Transmission Date: 20221027
  Serious: No
  Sender: FDA-Public Use
  Company Number: US-SA-2022MK000121

PATIENT
  Sex: Female

DRUGS (2)
  1. AFREZZA [Suspect]
     Active Substance: INSULIN HUMAN
     Indication: Product used for unknown indication
     Dosage: TAKES 3-5 TIMES A DAY DEPENDENT UPON WHAT SHE EATS
  2. AFREZZA [Suspect]
     Active Substance: INSULIN HUMAN
     Dosage: TAKES 3-5 TIMES A DAY DEPENDENT UPON WHAT SHE EATS

REACTIONS (2)
  - Blood glucose abnormal [Unknown]
  - Product complaint [Unknown]
